FAERS Safety Report 8821473 (Version 2)
Quarter: 2012Q4

REPORT INFORMATION
  Report Type: 
  Country: AU (occurrence: AU)
  Receive Date: 20121002
  Receipt Date: 20121012
  Transmission Date: 20130627
  Serious: Yes (Hospitalization)
  Sender: FDA-Public Use
  Company Number: PHHO2012AU012437

PATIENT
  Age: 38 Year
  Sex: Female
  Weight: 46.1 kg

DRUGS (5)
  1. LBH589 [Suspect]
     Indication: HAEMATOLOGICAL MALIGNANCY
     Dosage: 40 mg, MWF
     Route: 048
     Dates: start: 20120813, end: 20120822
  2. PREDNISOLONE [Suspect]
     Indication: DYSPNOEA
     Dosage: 12.5 mg, QD
     Route: 048
     Dates: start: 20120913, end: 20120917
  3. PREDNISOLONE [Suspect]
     Indication: LUNG INFILTRATION
  4. STEROIDS NOS [Concomitant]
     Dates: start: 20120829
  5. ASPIRIN [Concomitant]
     Indication: THROMBOCYTOSIS
     Dosage: 50 mg, QD
     Route: 048
     Dates: start: 20120916

REACTIONS (1)
  - Pneumonitis [Recovered/Resolved with Sequelae]
